FAERS Safety Report 6202165-8 (Version None)
Quarter: 2009Q2

REPORT INFORMATION
  Report Type: 
  Country: None (occurrence: None)
  Receive Date: 20090518
  Receipt Date: 20090323
  Transmission Date: 20091009
  Serious: No
  Sender: FDA-Public Use
  Company Number: WAES 0903USA04266

PATIENT
  Age: 68 Year
  Sex: Female

DRUGS (5)
  1. JANUVIA [Suspect]
     Indication: DIABETES MELLITUS
     Dosage: 100 MG/DAILY/PO
     Route: 048
     Dates: start: 20090323
  2. PEPCID [Concomitant]
  3. ALPRAZOLAM [Concomitant]
  4. POTASSIUM CHLORIDE [Concomitant]
  5. VITAMINS [Concomitant]

REACTIONS (6)
  - BLOOD GLUCOSE DECREASED [None]
  - BLOOD GLUCOSE INCREASED [None]
  - DIZZINESS [None]
  - ERYTHEMA [None]
  - HYPOAESTHESIA [None]
  - TREMOR [None]
